FAERS Safety Report 16822159 (Version 1)
Quarter: 2019Q4

REPORT INFORMATION
  Report Type: Spontaneous
  Country: US (occurrence: US)
  Receive Date: 20190918
  Receipt Date: 20190918
  Transmission Date: 20200122
  Serious: Yes (Hospitalization)
  Sender: FDA-Public Use
  Company Number: None

PATIENT
  Age: 72 Year
  Sex: Male
  Weight: 69.75 kg

DRUGS (1)
  1. PHENAZEPAM [Suspect]
     Active Substance: PHENAZEPAM

REACTIONS (4)
  - Hallucination [None]
  - Delirium [None]
  - Gait inability [None]
  - Benzodiazepine drug level increased [None]

NARRATIVE: CASE EVENT DATE: 20190826
